FAERS Safety Report 5467030-2 (Version None)
Quarter: 2007Q3

REPORT INFORMATION
  Report Type: 
  Country: None (occurrence: None)
  Receive Date: 20070925
  Receipt Date: 20070918
  Transmission Date: 20080115
  Serious: Yes (Other)
  Sender: FDA-Public Use
  Company Number: A0683619A

PATIENT
  Age: 40 Year
  Sex: Male

DRUGS (15)
  1. AVANDIA [Suspect]
     Indication: DRUG USE FOR UNKNOWN INDICATION
     Dosage: 4MG PER DAY
     Route: 048
  2. ALTACE [Concomitant]
  3. ASPIRIN [Concomitant]
  4. ATENOLOL [Concomitant]
  5. ELAVIL [Concomitant]
  6. EMPRACET [Concomitant]
  7. FLOVENT [Concomitant]
  8. GLYBURIDE [Concomitant]
  9. METFORMIN HCL [Concomitant]
  10. NAPROXEN [Concomitant]
  11. NOVO-HYDRAZIDE [Concomitant]
  12. PAXIL [Concomitant]
  13. PREDNISONE [Concomitant]
  14. SERAX [Concomitant]
  15. VENTOLIN [Concomitant]

REACTIONS (2)
  - CARDIAC FAILURE [None]
  - PULMONARY OEDEMA [None]
